FAERS Safety Report 15496750 (Version 4)
Quarter: 2018Q4

REPORT INFORMATION
  Report Type: Report from Study
  Country: US (occurrence: US)
  Receive Date: 20181014
  Receipt Date: 20181029
  Transmission Date: 20190205
  Serious: Yes (Other)
  Sender: FDA-Public Use
  Company Number: US-BEH-2018095604

PATIENT
  Age: 54 Year
  Sex: Female
  Weight: 65.31 kg

DRUGS (5)
  1. HAEGARDA [Suspect]
     Active Substance: HUMAN C1-ESTERASE INHIBITOR
     Indication: PROPHYLAXIS
  2. BERINERT [Suspect]
     Active Substance: HUMAN C1-ESTERASE INHIBITOR
     Dosage: UNK
     Route: 065
     Dates: start: 20181008
  3. BERINERT [Suspect]
     Active Substance: HUMAN C1-ESTERASE INHIBITOR
     Dosage: UNK
     Route: 065
     Dates: start: 20181015
  4. HAEGARDA [Suspect]
     Active Substance: HUMAN C1-ESTERASE INHIBITOR
     Indication: HEREDITARY ANGIOEDEMA
     Dosage: 3000 IU, UNK
     Route: 058
     Dates: start: 20180917
  5. BERINERT [Suspect]
     Active Substance: HUMAN C1-ESTERASE INHIBITOR
     Indication: HEREDITARY ANGIOEDEMA
     Dosage: UNK
     Route: 065
     Dates: start: 20180928

REACTIONS (20)
  - Rhinorrhoea [Unknown]
  - Ear discomfort [Unknown]
  - Influenza like illness [Unknown]
  - Hereditary angioedema [Unknown]
  - Arthralgia [Unknown]
  - Hereditary angioedema [Recovered/Resolved]
  - Bone pain [Unknown]
  - Fatigue [Unknown]
  - Dysgeusia [Unknown]
  - Thinking abnormal [Unknown]
  - Cough [Unknown]
  - Myalgia [Unknown]
  - Malaise [Unknown]
  - Abdominal pain upper [Unknown]
  - Feeling abnormal [Unknown]
  - Depressed mood [Unknown]
  - Urinary tract infection [Unknown]
  - Emotional distress [Unknown]
  - Sneezing [Unknown]
  - Headache [Unknown]

NARRATIVE: CASE EVENT DATE: 20180928
